FAERS Safety Report 6687025-0 (Version None)
Quarter: 2010Q2

REPORT INFORMATION
  Report Type: 
  Country: None (occurrence: None)
  Receive Date: 20100419
  Receipt Date: 20100407
  Transmission Date: 20101027
  Serious: Yes (Other)
  Sender: FDA-Public Use
  Company Number: NL-WYE-G05823710

PATIENT
  Sex: Male

DRUGS (1)
  1. TORISEL [Suspect]
     Indication: RENAL CELL CARCINOMA
     Dosage: 25 MG
     Dates: start: 20100225, end: 20100301

REACTIONS (4)
  - DRUG INTOLERANCE [None]
  - GASTROINTESTINAL TOXICITY [None]
  - HYPOPHAGIA [None]
  - THROMBOCYTOPENIA [None]
